FAERS Safety Report 6618184-3 (Version None)
Quarter: 2010Q1

REPORT INFORMATION
  Report Type: 
  Country: None (occurrence: None)
  Receive Date: 20100302
  Receipt Date: 20100222
  Transmission Date: 20100710
  Serious: Yes (Hospitalization, Other)
  Sender: FDA-Public Use
  Company Number: 20108258

PATIENT
  Age: 58 Year
  Sex: Male
  Weight: 74.5 kg

DRUGS (5)
  1. BACLOFEN [Suspect]
     Indication: MUSCLE SPASTICITY
     Dosage: 50 - 240 MCG, DAILY, INTRATHECAL - S
     Route: 037
  2. DANTRIUM [Concomitant]
  3. GABAPEN [Concomitant]
  4. MUCOSTA [Concomitant]
  5. NEUROTROPIN [Concomitant]

REACTIONS (2)
  - DECUBITUS ULCER [None]
  - SUBCUTANEOUS ABSCESS [None]
